FAERS Safety Report 11271939 (Version 1)
Quarter: 2015Q3

REPORT INFORMATION
  Report Type: Spontaneous
  Country: ZA (occurrence: ZA)
  Receive Date: 20150715
  Receipt Date: 20150715
  Transmission Date: 20151125
  Serious: Yes (Other)
  Sender: FDA-Public Use
  Company Number: ZA-AMGEN-ZAFSP2015065577

PATIENT
  Age: 31 Year
  Sex: Male

DRUGS (1)
  1. ENBREL [Suspect]
     Active Substance: ETANERCEPT
     Indication: RHEUMATOID ARTHRITIS
     Dosage: 50 MG, WEEKLY
     Route: 065
     Dates: start: 201501

REACTIONS (5)
  - Sleep disorder due to a general medical condition [Unknown]
  - Chest discomfort [Unknown]
  - Upper-airway cough syndrome [Unknown]
  - Respiratory tract infection [Unknown]
  - Secretion discharge [Unknown]

NARRATIVE: CASE EVENT DATE: 201505
